FAERS Safety Report 22297623 (Version 4)
Quarter: 2024Q3

REPORT INFORMATION
  Report Type: Spontaneous
  Country: CA (occurrence: CA)
  Receive Date: 20230509
  Receipt Date: 20240930
  Transmission Date: 20241017
  Serious: Yes (Other)
  Sender: CELLTRION
  Company Number: CA-CELLTRION INC.-2023CA002117

PATIENT

DRUGS (5)
  1. INFLECTRA [Suspect]
     Active Substance: INFLIXIMAB-DYYB
     Indication: Crohn^s disease
     Dosage: EVERY 6 WEEKS
     Route: 042
     Dates: start: 20230310
  2. INFLECTRA [Suspect]
     Active Substance: INFLIXIMAB-DYYB
     Dosage: EVERY 6 WEEKS
     Route: 042
     Dates: start: 20230804
  3. INFLECTRA [Suspect]
     Active Substance: INFLIXIMAB-DYYB
     Dosage: EVERY 4 WEEK
     Route: 042
     Dates: start: 20230831
  4. INFLECTRA [Suspect]
     Active Substance: INFLIXIMAB-DYYB
     Dosage: EVERY 4 WEEKS
     Route: 042
     Dates: start: 20240216
  5. INFLECTRA [Suspect]
     Active Substance: INFLIXIMAB-DYYB
     Dosage: EVERY 4 WEEKS
     Route: 042
     Dates: start: 20240822, end: 2024

REACTIONS (12)
  - Nephrolithiasis [Unknown]
  - Pneumonia [Not Recovered/Not Resolved]
  - Drug level below therapeutic [Not Recovered/Not Resolved]
  - Illness [Unknown]
  - Vomiting [Unknown]
  - Decreased appetite [Unknown]
  - Diarrhoea [Unknown]
  - Off label use [Unknown]
  - Headache [Unknown]
  - Abdominal pain [Unknown]
  - Pyrexia [Unknown]
  - Dysuria [Unknown]

NARRATIVE: CASE EVENT DATE: 20230101
